FAERS Safety Report 21668488 (Version 1)
Quarter: 2022Q4

REPORT INFORMATION
  Report Type: Spontaneous
  Country: CN (occurrence: CN)
  Receive Date: 20221201
  Receipt Date: 20221201
  Transmission Date: 20230113
  Serious: Yes (Other)
  Sender: FDA-Public Use
  Company Number: CN-Merck Healthcare KGaA-9367271

PATIENT
  Age: 54 Year
  Sex: Male
  Weight: 50 kg

DRUGS (3)
  1. ERBITUX [Suspect]
     Active Substance: CETUXIMAB
     Indication: Gingival cancer
     Dosage: 700 MG, WEEKLY (1/W)
     Route: 041
     Dates: start: 20221004, end: 20221004
  2. DOCETAXEL [Suspect]
     Active Substance: DOCETAXEL
     Indication: Gingival cancer
     Dosage: UNK UNK, UNKNOWN
     Route: 041
     Dates: start: 20221005, end: 20221005
  3. CISPLATIN [Suspect]
     Active Substance: CISPLATIN
     Indication: Gingival cancer
     Dosage: UNK UNK, UNKNOWN
     Route: 041
     Dates: start: 20221005, end: 20221007

REACTIONS (2)
  - Agranulocytosis [Recovering/Resolving]
  - Pyrexia [Recovering/Resolving]

NARRATIVE: CASE EVENT DATE: 20221015
